FAERS Safety Report 7745379-8 (Version None)
Quarter: 2011Q3

REPORT INFORMATION
  Report Type: 
  Country: None (occurrence: None)
  Receive Date: 20110826
  Receipt Date: 20110819
  Transmission Date: 20111222
  Serious: Yes (Hospitalization)
  Sender: FDA-Public Use
  Company Number: 2011SP039399

PATIENT
  Age: 48 Year
  Sex: Female

DRUGS (9)
  1. OMEPRAZOLE [Suspect]
     Dosage: 1 DF;QD;PO
     Route: 048
  2. AUGMENTIN '125' [Suspect]
     Dosage: ;PO
     Route: 048
     Dates: start: 20110803
  3. DAFALGAN CODEINE (PANALEINE CO) [Suspect]
     Dosage: PRN;PO
     Route: 048
  4. MYOLASTAN (TETRAZEPAM) [Suspect]
     Dosage: 25 MG;QD;PO
     Route: 048
  5. VOLTAREN [Suspect]
     Dosage: 1000 MG;BID;PO
     Route: 048
     Dates: start: 20110801
  6. DESLORATADINE [Suspect]
     Dosage: 5 MG;QD;PO
     Route: 048
     Dates: start: 20110801
  7. VOLTAREN [Suspect]
     Indication: SCIATICA
     Dosage: 75 MG;BID;PO
     Route: 048
     Dates: start: 20110706, end: 20110730
  8. IALUSET [Concomitant]
  9. BIAFINE [Concomitant]

REACTIONS (2)
  - TOXIC SKIN ERUPTION [None]
  - DERMATITIS BULLOUS [None]
